FAERS Safety Report 17442069 (Version 1)
Quarter: 2020Q1

REPORT INFORMATION
  Report Type: Spontaneous
  Country: US (occurrence: US)
  Receive Date: 20200220
  Receipt Date: 20200220
  Transmission Date: 20200409
  Serious: No
  Sender: FDA-Public Use
  Company Number: US-EMERGENT BIOSOLUTIONS,-19000433SP

PATIENT
  Sex: Female

DRUGS (2)
  1. NARCAN [Suspect]
     Active Substance: NALOXONE HYDROCHLORIDE
     Indication: PRODUCT USED FOR UNKNOWN INDICATION
     Dosage: UNK, UNK, NASAL
     Route: 045
     Dates: start: 20191126, end: 20191126
  2. UNSPECIFIED OPIOIDS [Concomitant]
     Route: 037

REACTIONS (2)
  - Unintentional use for unapproved indication [Not Recovered/Not Resolved]
  - Panic reaction [None]

NARRATIVE: CASE EVENT DATE: 20191126
